FAERS Safety Report 5443878-5 (Version None)
Quarter: 2007Q3

REPORT INFORMATION
  Report Type: 
  Country: None (occurrence: None)
  Receive Date: 20070905
  Receipt Date: 20070822
  Transmission Date: 20080115
  Serious: No
  Sender: FDA-Public Use
  Company Number: US-BOEHRINGER INGELHEIM PHARMACEUTICALS, INC.-2007-BP-19754BP

PATIENT
  Sex: Female

DRUGS (6)
  1. AGGRENOX [Suspect]
     Indication: CEREBROVASCULAR ACCIDENT
     Route: 048
     Dates: start: 20070701
  2. AGGRENOX [Suspect]
     Indication: TRANSIENT ISCHAEMIC ATTACK
  3. LIPITOR [Concomitant]
  4. ALTACE [Concomitant]
  5. ZETIA [Concomitant]
  6. PLAVIX [Concomitant]

REACTIONS (2)
  - DIZZINESS [None]
  - HEADACHE [None]
